FAERS Safety Report 7626304-7 (Version None)
Quarter: 2011Q3

REPORT INFORMATION
  Report Type: 
  Country: None (occurrence: None)
  Receive Date: 20110721
  Receipt Date: 20110714
  Transmission Date: 20111222
  Serious: Yes (Death, Other)
  Sender: FDA-Public Use
  Company Number: PHHY2011DE62950

PATIENT
  Age: 7 Month
  Sex: Male

DRUGS (8)
  1. THEOPHYLLINE [Concomitant]
  2. DIGOXIN [Concomitant]
     Dosage: UNK UKN, UNK
  3. CAPTOPRIL [Concomitant]
     Dosage: UNK UKN, UNK
  4. FUROSEMIDE [Concomitant]
     Dosage: UNK UKN, UNK
  5. SPIRONOLACTONE [Concomitant]
     Dosage: UNK UKN, UNK
  6. PREDNISOLONE [Concomitant]
  7. LOPRESSOR [Suspect]
     Dosage: UNK UKN, UNK
  8. PROPRANOLOL [Suspect]
     Dosage: 0.3 MG/KG, UNK

REACTIONS (11)
  - SYSTEMIC INFLAMMATORY RESPONSE SYNDROME [None]
  - HEPATIC FAILURE [None]
  - ESCHERICHIA INFECTION [None]
  - LYMPHOHISTIOCYTOSIS [None]
  - BRONCHOSPASM [None]
  - PYREXIA [None]
  - CHRONIC OBSTRUCTIVE PULMONARY DISEASE [None]
  - RESPIRATORY FAILURE [None]
  - PERSISTENT FOETAL CIRCULATION [None]
  - PULMONARY OEDEMA [None]
  - PULMONARY HYPERTENSIVE CRISIS [None]
